FAERS Safety Report 6487210-7 (Version None)
Quarter: 2009Q4

REPORT INFORMATION
  Report Type: 
  Country: None (occurrence: None)
  Receive Date: 20091210
  Receipt Date: 20091125
  Transmission Date: 20100525
  Serious: Yes (Hospitalization)
  Sender: FDA-Public Use
  Company Number: GB-BRACCO-000227

PATIENT
  Sex: Male

DRUGS (1)
  1. NIOPAM [Suspect]
     Indication: X-RAY
     Route: 065
     Dates: start: 20091120, end: 20091120

REACTIONS (2)
  - APHASIA [None]
  - DEPRESSED LEVEL OF CONSCIOUSNESS [None]
